FAERS Safety Report 9146309 (Version 1)
Quarter: 2013Q1

REPORT INFORMATION
  Report Type: Spontaneous
  Country: JP (occurrence: JP)
  Receive Date: 20130307
  Receipt Date: 20130307
  Transmission Date: 20140127
  Serious: Yes (Other)
  Sender: FDA-Public Use
  Company Number: JP-ASTELLAS-2013JP003096

PATIENT
  Age: 11 Year
  Sex: Female
  Weight: 31.6 kg

DRUGS (11)
  1. FUNGUARD [Suspect]
     Indication: BRONCHOPULMONARY ASPERGILLOSIS
     Dosage: 200 MG, UNKNOWN/D
     Route: 041
  2. CYCLOSPORIN A [Concomitant]
     Indication: APLASTIC ANAEMIA
     Dosage: 6 MG/KG, UNKNOWN/D
     Route: 065
  3. CYCLOSPORIN A [Concomitant]
     Dosage: UNK
     Route: 065
  4. PREDNISOLONE [Concomitant]
     Indication: APLASTIC ANAEMIA
     Dosage: 1 MG/KG, UNKNOWN/D
     Route: 065
  5. PREDNISOLONE [Concomitant]
     Dosage: 2 MG/KG, UNKNOWN/D
     Route: 065
  6. G-CSF [Concomitant]
     Indication: APLASTIC ANAEMIA
     Dosage: 150 UG/M2, UNKNOWN/D
     Route: 065
  7. G-CSF [Concomitant]
     Dosage: 400 UG/M2, UNKNOWN/D
     Route: 065
  8. VORICONAZOLE [Concomitant]
     Indication: BRONCHOPULMONARY ASPERGILLOSIS
     Dosage: 800 MG, UNKNOWN/D
     Route: 041
  9. CYCLOPHOSPHAMIDE [Concomitant]
     Indication: BONE MARROW CONDITIONING REGIMEN
     Dosage: 750 MG/M2, UNKNOWN/D
     Route: 065
  10. FLUDARABINE PHOSPHATE [Concomitant]
     Indication: BONE MARROW CONDITIONING REGIMEN
     Dosage: 25 MG/M2, UNKNOWN/D
     Route: 065
  11. METHOTREXATE [Concomitant]
     Indication: PROPHYLAXIS AGAINST GRAFT VERSUS HOST DISEASE
     Dosage: 15 MG/M2, UNKNOWN/D
     Route: 065

REACTIONS (2)
  - Drug ineffective [Unknown]
  - Bronchopulmonary aspergillosis [Not Recovered/Not Resolved]
